FAERS Safety Report 11103050 (Version 2)
Quarter: 2015Q2

REPORT INFORMATION
  Report Type: Spontaneous
  Country: US (occurrence: US)
  Receive Date: 20150511
  Receipt Date: 20150513
  Transmission Date: 20150821
  Serious: No
  Sender: FDA-Public Use
  Company Number: US-ASTRAZENECA-2015SE41424

PATIENT
  Age: 27016 Day
  Sex: Male
  Weight: 49.9 kg

DRUGS (1)
  1. PULMICORT TURBUHALER [Suspect]
     Active Substance: BUDESONIDE
     Indication: CHRONIC OBSTRUCTIVE PULMONARY DISEASE
     Dosage: 180UG/225MG, DOSE-180UG, 2 PUFFS, FOUR TIMES A DAY
     Route: 055
     Dates: start: 20150408

REACTIONS (7)
  - Abdominal discomfort [Unknown]
  - Dyspnoea [Unknown]
  - Retching [Unknown]
  - Cough [Unknown]
  - Drug dose omission [Unknown]
  - Nausea [Recovered/Resolved]
  - Off label use [Unknown]

NARRATIVE: CASE EVENT DATE: 20150408
